FAERS Safety Report 8234646-X (Version None)
Quarter: 2012Q1

REPORT INFORMATION
  Report Type: 
  Country: None (occurrence: None)
  Receive Date: 20120326
  Receipt Date: 20120321
  Transmission Date: 20120608
  Serious: Yes (Other)
  Sender: FDA-Public Use
  Company Number: US-PFIZER INC-2012074704

PATIENT
  Sex: Female

DRUGS (2)
  1. CALAN [Suspect]
     Dosage: UNK
  2. VERAPAMIL HCL [Suspect]
     Dosage: UNK

REACTIONS (1)
  - MYOCARDIAL INFARCTION [None]
